FAERS Safety Report 10069366 (Version 1)
Quarter: 2014Q2

REPORT INFORMATION
  Report Type: Spontaneous
  Country: GR (occurrence: GR)
  Receive Date: 20140410
  Receipt Date: 20140410
  Transmission Date: 20141212
  Serious: Yes (Other)
  Sender: FDA-Public Use
  Company Number: GR-AMGEN-GRCSP2014024440

PATIENT
  Age: 79 Year
  Sex: Female

DRUGS (3)
  1. PROLIA [Suspect]
     Indication: OSTEOPOROSIS
     Dosage: 60 MG, Q6MO
     Route: 065
  2. PROLIA [Suspect]
     Dosage: 60 MG, Q6MO
     Route: 065
  3. SYMBICORT [Concomitant]
     Dosage: UNK
     Route: 065

REACTIONS (1)
  - Thrombosis [Recovering/Resolving]
